FAERS Safety Report 5859621-1 (Version None)
Quarter: 2008Q3

REPORT INFORMATION
  Report Type: 
  Country: None (occurrence: None)
  Receive Date: 20080827
  Receipt Date: 20080818
  Transmission Date: 20090109
  Serious: Yes (Death)
  Sender: FDA-Public Use
  Company Number: US-BAXTER-2008BH005471

PATIENT
  Age: 65 Year
  Sex: Female

DRUGS (16)
  1. GLUCOSE [Suspect]
     Indication: PARENTERAL NUTRITION
     Dosage: DOSE UNIT:UNKNOWN
     Route: 042
     Dates: start: 20080517, end: 20080517
  2. GLUCOSE [Suspect]
     Dosage: DOSE UNIT:UNKNOWN
     Route: 042
     Dates: start: 20080517, end: 20080517
  3. GLUCOSE [Suspect]
     Dosage: DOSE UNIT:UNKNOWN
     Route: 042
     Dates: start: 20080517, end: 20080517
  4. GLUCOSE [Suspect]
     Dosage: DOSE UNIT:UNKNOWN
     Route: 042
     Dates: start: 20080517, end: 20080517
  5. GLUCOSE [Suspect]
     Dosage: DOSE UNIT:UNKNOWN
     Route: 042
     Dates: start: 20080517, end: 20080517
  6. GLUCOSE [Suspect]
     Dosage: DOSE UNIT:UNKNOWN
     Route: 042
     Dates: start: 20080517, end: 20080517
  7. GLUCOSE [Suspect]
     Dosage: DOSE UNIT:UNKNOWN
     Route: 042
     Dates: start: 20080517, end: 20080517
  8. GLUCOSE [Suspect]
     Dosage: DOSE UNIT:UNKNOWN
     Route: 042
     Dates: start: 20080517, end: 20080517
  9. PROSOL 20% SULFITE FREE [Suspect]
     Indication: PARENTERAL NUTRITION
     Dosage: DOSE UNIT:UNKNOWN
     Route: 042
     Dates: start: 20080517, end: 20080517
  10. PROSOL 20% SULFITE FREE [Suspect]
     Dosage: DOSE UNIT:UNKNOWN
     Route: 042
     Dates: start: 20080517, end: 20080517
  11. 15% POTASSIUM CHLORIDE INJECTION [Suspect]
     Indication: PARENTERAL NUTRITION
     Dosage: DOSE UNIT:UNKNOWN
     Route: 042
     Dates: start: 20080517, end: 20080517
  12. STERILE WATER FOR INJECTION IN PLASTIC CONTAINER [Suspect]
     Indication: PARENTERAL NUTRITION
     Dosage: DOSE UNIT:UNKNOWN
     Route: 042
     Dates: start: 20080517, end: 20080517
  13. STERILE WATER FOR INJECTION IN PLASTIC CONTAINER [Suspect]
     Dosage: DOSE UNIT:UNKNOWN
     Route: 042
     Dates: start: 20080517, end: 20080517
  14. STERILE WATER FOR INJECTION IN PLASTIC CONTAINER [Suspect]
     Dosage: DOSE UNIT:UNKNOWN
     Route: 042
     Dates: start: 20080517, end: 20080517
  15. INTRALIPID 20% [Suspect]
     Indication: PARENTERAL NUTRITION
     Dosage: DOSE UNIT:UNKNOWN
     Route: 042
     Dates: start: 20080517, end: 20080517
  16. TPN [Suspect]
     Indication: PARENTERAL NUTRITION
     Dosage: DOSE UNIT:UNKNOWN
     Route: 042
     Dates: start: 20080517, end: 20080517

REACTIONS (5)
  - BACK PAIN [None]
  - DEATH [None]
  - DYSPNOEA [None]
  - PRURITUS [None]
  - URTICARIA [None]
